FAERS Safety Report 7642076-4 (Version None)
Quarter: 2011Q3

REPORT INFORMATION
  Report Type: 
  Country: None (occurrence: None)
  Receive Date: 20110728
  Receipt Date: 20110718
  Transmission Date: 20111222
  Serious: No
  Sender: FDA-Public Use
  Company Number: IT-ELI_LILLY_AND_COMPANY-IT201106004984

PATIENT
  Sex: Female

DRUGS (2)
  1. ALIMTA [Suspect]
     Indication: LUNG ADENOCARCINOMA METASTATIC
     Dosage: 700 MG, UNKNOWN
     Route: 065
     Dates: start: 20090529, end: 20090529
  2. CISPLATIN [Concomitant]
     Indication: LUNG ADENOCARCINOMA METASTATIC
     Dosage: 100 MG, UNKNOWN
     Route: 042
     Dates: start: 20090529, end: 20090529

REACTIONS (2)
  - HYPERTRANSAMINASAEMIA [None]
  - ASTHENIA [None]
